FAERS Safety Report 5991350-6 (Version None)
Quarter: 2008Q4

REPORT INFORMATION
  Report Type: 
  Country: None (occurrence: None)
  Receive Date: 20081202
  Receipt Date: 20080821
  Transmission Date: 20090506
  Serious: Yes (Hospitalization, Other)
  Sender: FDA-Public Use
  Company Number: WAES 0702USA00408

PATIENT
  Age: 69 Year
  Sex: Female

DRUGS (11)
  1. FOSAMAX [Suspect]
     Indication: OSTEOPOROSIS
     Dosage: 70 MG/WKY/PO
     Route: 048
     Dates: start: 20040426, end: 20060509
  2. CENTRUM SILVER [Concomitant]
  3. DIOVAN [Concomitant]
  4. FIBERCON [Concomitant]
  5. ZOCOR [Concomitant]
  6. ATENOLOL [Concomitant]
  7. CALCIUM (UNSPECIFIED) (+) VITAMI [Concomitant]
  8. FELODIPINE [Concomitant]
  9. TRIAMTERENE AND HYDROCHLOROTHIAZIDE [Concomitant]
  10. PIROXICAM [Concomitant]
  11. VITAMIN E [Concomitant]

REACTIONS (10)
  - ANGIOPATHY [None]
  - DEPRESSION [None]
  - DYSPEPSIA [None]
  - FATIGUE [None]
  - MALAISE [None]
  - MUSCULOSKELETAL PAIN [None]
  - ORAL INFECTION [None]
  - OSTEOMYELITIS [None]
  - OSTEONECROSIS [None]
  - VOMITING [None]
